FAERS Safety Report 7729064-4 (Version None)
Quarter: 2011Q3

REPORT INFORMATION
  Report Type: 
  Country: None (occurrence: None)
  Receive Date: 20110906
  Receipt Date: 20110822
  Transmission Date: 20111222
  Serious: Yes (Other)
  Sender: FDA-Public Use
  Company Number: JP-PFIZER INC-2011205406

PATIENT
  Age: 77 Year
  Sex: Female
  Weight: 54 kg

DRUGS (10)
  1. CAMPTOSAR [Suspect]
     Indication: COLORECTAL CANCER
     Dosage: 160 MG/BODY (105.3 MG/M2)
     Route: 041
     Dates: start: 20110209, end: 20110209
  2. EFUDEX [Concomitant]
     Dosage: 500 MG/BODY (328.9 MG/M2)
     Route: 040
     Dates: start: 20110323, end: 20110531
  3. EFUDEX [Concomitant]
     Dosage: 2000 MG/BODY/D1-2 (1315.8 MG/M2/D1-2)
     Route: 041
     Dates: start: 20110323, end: 20110531
  4. EFUDEX [Concomitant]
     Dosage: 2500 MG/BODY/D1-2, (1644.7 MG/M2/D1-2)
     Route: 041
     Dates: start: 20110309, end: 20110309
  5. EFUDEX [Concomitant]
     Indication: COLORECTAL CANCER
     Dosage: 500 MG/BODY (328.9 MG/M2)
     Route: 040
     Dates: start: 20110209, end: 20110209
  6. CAMPTOSAR [Suspect]
     Dosage: 80 MG/BODY, (52.6 MG/M2)
     Route: 041
     Dates: start: 20110309, end: 20110531
  7. AVASTIN [Concomitant]
     Indication: COLORECTAL CANCER
     Dosage: 250 MG/BODY
     Route: 041
     Dates: start: 20110209, end: 20110323
  8. CALCIUM LEVOFOLINATE [Concomitant]
     Indication: COLORECTAL CANCER
     Dosage: 300 MG/BODY (197.4 MG/M2)
     Route: 041
     Dates: start: 20110209, end: 20110531
  9. EFUDEX [Concomitant]
     Dosage: 3000 MG/BODY/D1-2, (1973.7 MG/M2/D1-2)
     Route: 041
     Dates: start: 20110209, end: 20110209
  10. EFUDEX [Concomitant]
     Dosage: 500 MG/BODY (328.9 MG/M2)
     Route: 040
     Dates: start: 20110309, end: 20110309

REACTIONS (2)
  - INFECTION [None]
  - COLONIC FISTULA [None]
